FAERS Safety Report 10373717 (Version 1)
Quarter: 2014Q1

REPORT INFORMATION
  Report Type: Report from Study
  Country: US (occurrence: None)
  Receive Date: 20140306
  Receipt Date: 20140306
  Transmission Date: 20141002
  Serious: Yes (Other)
  Sender: FDA-Public Use
  Company Number: 163-21880-13032320

PATIENT
  Age: 48 Year
  Sex: Female

DRUGS (3)
  1. REVLIMID (LENALIDOMIDE) (UNKNOWN) [Suspect]
     Indication: PLASMA CELL MYELOMA
  2. DEXAMETHASONE (DEXAMETHASONE) (UNKNOWN) [Suspect]
     Indication: PLASMA CELL MYELOMA
  3. SAR650984 [Suspect]
     Indication: PLASMA CELL MYELOMA
     Dates: start: 20130305, end: 20130305

REACTIONS (1)
  - Chest discomfort [None]
